FAERS Safety Report 8103698-X (Version None)
Quarter: 2012Q1

REPORT INFORMATION
  Report Type: 
  Country: None (occurrence: None)
  Receive Date: 20120201
  Receipt Date: 20120125
  Transmission Date: 20120608
  Serious: Yes (Congenital Anomaly, Other)
  Sender: FDA-Public Use
  Company Number: US-PFIZER INC-2011158495

PATIENT
  Sex: Female
  Weight: 4 kg

DRUGS (3)
  1. FOLIC ACID [Concomitant]
     Dosage: UNK,
     Route: 064
  2. EFFEXOR [Suspect]
     Dosage: UNK
     Route: 064
     Dates: start: 20060401
  3. PRENATAL [Concomitant]
     Dosage: UNK,
     Route: 064

REACTIONS (16)
  - PULMONARY ARTERY STENOSIS [None]
  - TRICUSPID VALVE INCOMPETENCE [None]
  - DOUBLE OUTLET RIGHT VENTRICLE [None]
  - VASCULAR ANOMALY [None]
  - TRANSPOSITION OF THE GREAT VESSELS [None]
  - HYPOPLASTIC LEFT HEART SYNDROME [None]
  - HETEROTAXIA [None]
  - VENTRICULAR SEPTAL DEFECT [None]
  - MATERNAL EXPOSURE TIMING UNSPECIFIED [None]
  - AORTIC VALVE INCOMPETENCE [None]
  - TAKAYASU'S ARTERITIS [None]
  - PATENT DUCTUS ARTERIOSUS [None]
  - CARDIAC ANEURYSM [None]
  - CARDIOMEGALY [None]
  - MITRAL VALVE INCOMPETENCE [None]
  - SUPRAVENTRICULAR TACHYCARDIA [None]
